FAERS Safety Report 6221235-1 (Version None)
Quarter: 2009Q2

REPORT INFORMATION
  Report Type: 
  Country: None (occurrence: None)
  Receive Date: 20090610
  Receipt Date: 20090605
  Transmission Date: 20091009
  Serious: Yes (Other)
  Sender: FDA-Public Use
  Company Number: GR-MERCK-0901GRC00001

PATIENT
  Age: 78 Year
  Sex: Female

DRUGS (6)
  1. JANUVIA [Suspect]
     Indication: DIABETES MELLITUS
     Route: 048
     Dates: start: 20080701
  2. QUINAPRIL HYDROCHLORIDE [Concomitant]
     Route: 048
     Dates: start: 20000101
  3. EPROSARTAN MESYLATE [Concomitant]
     Route: 048
     Dates: start: 20040101
  4. METOPROLOL FUMARATE [Concomitant]
     Route: 048
     Dates: start: 20000101
  5. LEVOTHYROXINE SODIUM [Concomitant]
     Route: 048
  6. ATORVASTATIN CALCIUM [Concomitant]
     Route: 048

REACTIONS (1)
  - THROMBOCYTOPENIA [None]
